FAERS Safety Report 10052044 (Version 1)
Quarter: 2014Q2

REPORT INFORMATION
  Report Type: Report from Study
  Country: CA (occurrence: CA)
  Receive Date: 20140402
  Receipt Date: 20140402
  Transmission Date: 20141212
  Serious: Yes (Hospitalization)
  Sender: FDA-Public Use
  Company Number: CA-ROCHE-1374792

PATIENT
  Age: 62 Year
  Sex: Male

DRUGS (3)
  1. PEGASYS [Suspect]
     Indication: CHRONIC HEPATITIS C
     Dosage: INJECTION
     Route: 058
     Dates: start: 20140212, end: 20140319
  2. COPEGUS [Suspect]
     Indication: CHRONIC HEPATITIS C
     Dosage: 49 TABLET/WEEK
     Route: 048
     Dates: start: 20140212
  3. VICTRELIS [Suspect]
     Indication: CHRONIC HEPATITIS C
     Route: 048

REACTIONS (1)
  - Haemorrhage [Not Recovered/Not Resolved]
